FAERS Safety Report 5186386-1 (Version None)
Quarter: 2006Q4

REPORT INFORMATION
  Report Type: 
  Country: None (occurrence: None)
  Receive Date: 20061213
  Receipt Date: 20061130
  Transmission Date: 20070319
  Serious: Yes (Other)
  Sender: FDA-Public Use
  Company Number: 2006141405

PATIENT
  Age: 72 Year
  Sex: Male
  Weight: 59 kg

DRUGS (12)
  1. VFEND [Suspect]
     Indication: ASPERGILLOSIS
     Dosage: SEE IMAGE
     Route: 048
     Dates: start: 20060620, end: 20060901
  2. VFEND [Suspect]
     Indication: EMPHYSEMA
     Dosage: SEE IMAGE
     Route: 048
     Dates: start: 20060620, end: 20060901
  3. VFEND [Suspect]
     Indication: ASPERGILLOSIS
     Dosage: SEE IMAGE
     Route: 048
     Dates: start: 20061002
  4. VFEND [Suspect]
     Indication: EMPHYSEMA
     Dosage: SEE IMAGE
     Route: 048
     Dates: start: 20061002
  5. VFEND [Suspect]
     Indication: ASPERGILLOSIS
     Dosage: SEE IMAGE
     Route: 048
     Dates: start: 20061025
  6. VFEND [Suspect]
     Indication: EMPHYSEMA
     Dosage: SEE IMAGE
     Route: 048
     Dates: start: 20061025
  7. CIPRALAN [Concomitant]
  8. BISOPROLOL FUMARATE [Concomitant]
  9. ZOCOR [Concomitant]
  10. SINTROM [Concomitant]
  11. NEXIUM [Concomitant]
  12. SOTALOL HCL [Concomitant]

REACTIONS (10)
  - ARTHRALGIA [None]
  - BACK PAIN [None]
  - CYTOLYTIC HEPATITIS [None]
  - DEMYELINATION [None]
  - FOOD INTOLERANCE [None]
  - HEPATITIS CHOLESTATIC [None]
  - MYALGIA [None]
  - NAUSEA [None]
  - NEUROPATHY PERIPHERAL [None]
  - VOMITING [None]
